FAERS Safety Report 5828007-8 (Version None)
Quarter: 2008Q3

REPORT INFORMATION
  Report Type: 
  Country: None (occurrence: None)
  Receive Date: 20080728
  Receipt Date: 20080714
  Transmission Date: 20090109
  Serious: Yes (Life-Threatening)
  Sender: FDA-Public Use
  Company Number: 1-16405801

PATIENT
  Age: 42 Year
  Sex: Female

DRUGS (1)
  1. METHIMAZOLE [Suspect]
     Indication: BASEDOW'S DISEASE
     Dosage: ORAL
     Route: 048

REACTIONS (7)
  - FEBRILE NEUTROPENIA [None]
  - LACERATION [None]
  - LYMPHADENOPATHY [None]
  - MONONUCLEOSIS HETEROPHILE TEST POSITIVE [None]
  - ODYNOPHAGIA [None]
  - OROPHARYNGEAL PAIN [None]
  - RASH PUSTULAR [None]
